FAERS Safety Report 8488011-0 (Version None)
Quarter: 2012Q3

REPORT INFORMATION
  Report Type: 
  Country: None (occurrence: None)
  Receive Date: 20120705
  Receipt Date: 20120702
  Transmission Date: 20120928
  Serious: Yes (Other)
  Sender: FDA-Public Use
  Company Number: PHEH2012US009085

PATIENT
  Sex: Female
  Weight: 37.642 kg

DRUGS (5)
  1. DROSPIRENONE AND ETHINYL ESTRADIOL [Concomitant]
     Indication: DYSMENORRHOEA
     Dosage: UNK UKN, UNK
     Dates: end: 20120523
  2. LOPERAMIDE [Concomitant]
     Indication: DIARRHOEA
     Dosage: 2 MG, UNK
     Route: 048
  3. CALCIUM CARBONATE [Concomitant]
     Indication: OSTEOPOROSIS
     Dosage: UNK UKN, UNK
     Route: 048
  4. RECLAST [Suspect]
     Indication: OSTEOPOROSIS
     Dosage: UNK UKN, UNK
     Route: 042
     Dates: start: 20120419
  5. DROSPIRENONE AND ETHINYL ESTRADIOL [Concomitant]
     Dosage: UNK UKN, UNK

REACTIONS (11)
  - DIARRHOEA [None]
  - PYREXIA [None]
  - GAIT DISTURBANCE [None]
  - THIRST [None]
  - INFLUENZA LIKE ILLNESS [None]
  - NECK PAIN [None]
  - ASTHENIA [None]
  - PAIN IN JAW [None]
  - COORDINATION ABNORMAL [None]
  - DECREASED APPETITE [None]
  - BONE PAIN [None]
